FAERS Safety Report 7459588-9 (Version None)
Quarter: 2011Q2

REPORT INFORMATION
  Report Type: 
  Country: None (occurrence: None)
  Receive Date: 20110504
  Receipt Date: 20110504
  Transmission Date: 20111010
  Serious: Yes (Other)
  Sender: FDA-Public Use
  Company Number: None

PATIENT
  Age: 60 Year
  Sex: Female
  Weight: 106.5953 kg

DRUGS (3)
  1. CRESTOR [Suspect]
     Indication: MYOCARDIAL INFARCTION
     Dosage: 5 MG TABLET DAILY PO
     Route: 048
  2. CRESTOR [Suspect]
     Indication: CORONARY ARTERY OCCLUSION
     Dosage: 5 MG TABLET DAILY PO
     Route: 048
  3. CRESTOR [Suspect]
     Indication: LOW DENSITY LIPOPROTEIN INCREASED
     Dosage: 5 MG TABLET DAILY PO
     Route: 048

REACTIONS (6)
  - LIP DISORDER [None]
  - CHAPPED LIPS [None]
  - STOMATITIS [None]
  - MOUTH HAEMORRHAGE [None]
  - ANORECTAL DISCOMFORT [None]
  - HAEMORRHOIDS [None]
